FAERS Safety Report 18956098 (Version 2)
Quarter: 2021Q3

REPORT INFORMATION
  Report Type: Report from Study
  Country: US (occurrence: US)
  Receive Date: 20210301
  Receipt Date: 20210708
  Transmission Date: 20211014
  Serious: Yes (Death, Life-Threatening)
  Sender: FDA-Public Use
  Company Number: US-CELGENEUS-USA-20210207198

PATIENT
  Age: 75 Year
  Sex: Female
  Weight: 52.9 kg

DRUGS (4)
  1. VANCOMYCIN [Concomitant]
     Active Substance: VANCOMYCIN
     Indication: EVIDENCE BASED TREATMENT
     Route: 065
     Dates: start: 20201130
  2. LUSPATERCEPT. [Suspect]
     Active Substance: LUSPATERCEPT
     Indication: ANAEMIA OF MALIGNANT DISEASE
     Dosage: 1 MILLIGRAM/KILOGRAM
     Route: 058
     Dates: start: 20180718
  3. CEFEPIME [Concomitant]
     Active Substance: CEFEPIME HYDROCHLORIDE
     Indication: EVIDENCE BASED TREATMENT
     Route: 065
     Dates: start: 20201130
  4. LUSPATERCEPT. [Suspect]
     Active Substance: LUSPATERCEPT
     Dosage: 1.33 MILLIGRAM/KILOGRAM
     Route: 058
     Dates: start: 2018, end: 20181212

REACTIONS (1)
  - Acute myeloid leukaemia [Fatal]

NARRATIVE: CASE EVENT DATE: 20201202
